FAERS Safety Report 16355109 (Version 1)
Quarter: 2019Q2

REPORT INFORMATION
  Report Type: Spontaneous
  Country: BR (occurrence: BR)
  Receive Date: 20190524
  Receipt Date: 20190524
  Transmission Date: 20190711
  Serious: Yes (Hospitalization)
  Sender: FDA-Public Use
  Company Number: BR-ALLERGAN-1919779US

PATIENT
  Sex: Female

DRUGS (6)
  1. CONTROL OF CHOLESTEROL IN BLOOD [Concomitant]
     Indication: BLOOD CHOLESTEROL
  2. ANTIHYPERTENSIVES [Concomitant]
     Active Substance: UNSPECIFIED INGREDIENT
     Indication: HYPERTENSION
     Dosage: UNK
  3. INSULIN [Concomitant]
     Active Substance: INSULIN NOS
     Indication: DIABETES MELLITUS
     Dosage: UNK
  4. MEDICATION TO CONTROL ARRHYTHMIA [Concomitant]
     Indication: ARRHYTHMIA
  5. PRADAXA [Suspect]
     Active Substance: DABIGATRAN ETEXILATE MESYLATE
     Indication: ANTICOAGULANT THERAPY
  6. BETAGAN [Suspect]
     Active Substance: LEVOBUNOLOL HYDROCHLORIDE
     Indication: GLAUCOMA
     Dosage: UNK
     Route: 047

REACTIONS (6)
  - Infection [Unknown]
  - Soft tissue necrosis [Unknown]
  - Product dose omission [Unknown]
  - Vascular rupture [Unknown]
  - Internal haemorrhage [Unknown]
  - Peripheral venous disease [Unknown]
